FAERS Safety Report 6698879-6 (Version None)
Quarter: 2010Q2

REPORT INFORMATION
  Report Type: 
  Country: None (occurrence: None)
  Receive Date: 20100427
  Receipt Date: 20100414
  Transmission Date: 20101027
  Serious: Yes (Hospitalization)
  Sender: FDA-Public Use
  Company Number: JP-MERCK-1001USA00224

PATIENT
  Age: 78 Year
  Sex: Female

DRUGS (10)
  1. HYZAAR [Suspect]
     Indication: HYPERTENSION
     Route: 048
     Dates: start: 20091023, end: 20091218
  2. DIART [Suspect]
     Indication: OEDEMA PERIPHERAL
     Dosage: DOSE FREQUENCY UNKNOWN
     Route: 048
     Dates: start: 20090619, end: 20091218
  3. CRESTOR [Concomitant]
     Indication: BLOOD CHOLESTEROL INCREASED
     Dosage: DOSE FREQUENCY UNKNOWN
     Route: 048
     Dates: start: 20091023
  4. CLARITIN REDITABS [Concomitant]
     Indication: RHINITIS ALLERGIC
     Dosage: DOSE FREQUENCY UNKNOWN
     Route: 048
     Dates: start: 20091023, end: 20091218
  5. OMEPRAL [Concomitant]
     Indication: OESOPHAGITIS
     Dosage: DOSE FREQUENCY UNKNOWN
     Route: 048
     Dates: start: 20091126, end: 20091218
  6. KLARICID [Concomitant]
     Indication: BRONCHITIS
     Dosage: DOSE FREQUENCY UNKNOWN
     Route: 048
     Dates: start: 20091215, end: 20091218
  7. PL-GRANULES [Concomitant]
     Indication: BRONCHITIS
     Dosage: DOSE FREQUENCY UNKNOWN
     Route: 048
     Dates: start: 20091215, end: 20091218
  8. ASVERIN [Concomitant]
     Indication: BRONCHITIS
     Dosage: DOSE FREQUENCY UNKNOWN
     Route: 048
     Dates: start: 20091215, end: 20091218
  9. SOLON [Concomitant]
     Indication: BRONCHITIS
     Dosage: DOSE FREQUENCY UNKNOWN
     Route: 048
     Dates: start: 20091215, end: 20091218
  10. AZELASTINE HCL [Concomitant]
     Indication: BRONCHITIS
     Dosage: DOSE FREQUENCY UNKNOWN
     Route: 048
     Dates: start: 20091215, end: 20091218

REACTIONS (2)
  - ACUTE PRERENAL FAILURE [None]
  - BRONCHITIS [None]
